FAERS Safety Report 12705030 (Version 3)
Quarter: 2016Q3

REPORT INFORMATION
  Report Type: Report from Study
  Country: KR (occurrence: KR)
  Receive Date: 20160831
  Receipt Date: 20160929
  Transmission Date: 20161109
  Serious: Yes (Hospitalization)
  Sender: FDA-Public Use
  Company Number: KR-ROCHE-1816569

PATIENT
  Age: 61 Year
  Sex: Female
  Weight: 54.6 kg

DRUGS (35)
  1. BEVACIZUMAB [Suspect]
     Active Substance: BEVACIZUMAB
     Indication: GASTRIC CANCER
     Dosage: MOST RECENT DOSE OF BEVACIZUMAB, 560 MG, PRIOR TO SAE ONSET DATE WAS ON 03/AUG/2016
     Route: 042
     Dates: start: 20160720
  2. OXALIPLATIN. [Suspect]
     Active Substance: OXALIPLATIN
     Indication: GASTRIC CANCER
     Dosage: MOST RECENT DOSE OF OXALIPLATIN, 130 MG, PRIOR TO SAE ONSET DATE WAS ON 03/AUG/2016
     Route: 042
     Dates: start: 20160720
  3. ALOXI [Concomitant]
     Active Substance: PALONOSETRON HYDROCHLORIDE
     Indication: PREMEDICATION
     Route: 042
     Dates: start: 20160720, end: 20160720
  4. ALOXI [Concomitant]
     Active Substance: PALONOSETRON HYDROCHLORIDE
     Route: 042
     Dates: start: 20160803, end: 20160803
  5. DEXAMETHASONE. [Concomitant]
     Active Substance: DEXAMETHASONE
     Route: 048
     Dates: start: 20160804, end: 20160806
  6. TANTUM (BENZYDAMINE HYDROCHLORIDE) [Concomitant]
     Indication: INFECTION PROPHYLAXIS
     Route: 061
     Dates: start: 20160721
  7. ACETAMINOPHEN/TRAMADOL HYDROCHLORIDE [Concomitant]
     Route: 048
     Dates: start: 201509
  8. PHOSTEN [Concomitant]
     Indication: HYPOKALAEMIA
     Route: 042
     Dates: start: 20160817, end: 20160817
  9. FOLINIC ACID [Suspect]
     Active Substance: LEUCOVORIN
     Indication: GASTRIC CANCER
     Dosage: MOST RECENT DOSE OF LEUCOVORIN, 600 MG, PRIOR TO SAE ONSET DATE WAS ON 03/AUG/2016
     Route: 042
     Dates: start: 20160720
  10. FOLINIC ACID [Suspect]
     Active Substance: LEUCOVORIN
     Indication: NEOPLASM
  11. ALBIS [Concomitant]
     Active Substance: BISMUTH SUBCITRATE\RANITIDINE HYDROCHLORIDE\SUCRALFATE
     Indication: SPINAL OPERATION
     Route: 048
     Dates: start: 201509
  12. OPALMON [Concomitant]
     Active Substance: LIMAPROST
     Indication: SPINAL OPERATION
     Dosage: 5 OTHER
     Route: 048
     Dates: start: 201509
  13. MACPERAN [Concomitant]
     Active Substance: METOCLOPRAMIDE HYDROCHLORIDE
     Indication: NAUSEA
     Route: 042
     Dates: start: 20160721, end: 20160721
  14. OXALIPLATIN. [Suspect]
     Active Substance: OXALIPLATIN
     Indication: NEOPLASM
  15. PANTOLOC [Concomitant]
     Active Substance: PANTOPRAZOLE SODIUM
     Indication: DYSPEPSIA
     Route: 048
     Dates: start: 20160702
  16. DEXAMETHASONE. [Concomitant]
     Active Substance: DEXAMETHASONE
     Indication: PREMEDICATION
     Route: 042
     Dates: start: 20160720, end: 20160720
  17. DEXTROSE/POTASSIUM CHLORIDE/SODIUM CHLORIDE [Concomitant]
     Indication: HYPOKALAEMIA
     Route: 042
     Dates: start: 20160817, end: 20160824
  18. FLUOROURACIL. [Suspect]
     Active Substance: FLUOROURACIL
     Indication: GASTRIC CANCER
     Dosage: 400 MG/M2 EVERY TWO WEEKS PLUS FOLLOW UP 2400 MG/M2 CONTINUIOUS INTRAVENOUS INFUSION OVER 46 HOURS?M
     Route: 042
     Dates: start: 20160720
  19. FLUOROURACIL. [Suspect]
     Active Substance: FLUOROURACIL
     Indication: NEOPLASM
  20. DEXAMETHASONE. [Concomitant]
     Active Substance: DEXAMETHASONE
     Route: 048
     Dates: start: 20160721, end: 20160724
  21. SYNTHROID [Concomitant]
     Active Substance: LEVOTHYROXINE SODIUM
     Indication: HYPOTHYROIDISM
     Dosage: 100 OTHER
     Route: 048
     Dates: start: 1996
  22. STILNOX [Concomitant]
     Active Substance: ZOLPIDEM TARTRATE
     Indication: INSOMNIA
     Route: 048
     Dates: start: 20160721, end: 20160721
  23. AD-MUC (SOUTH KOREA) [Concomitant]
     Indication: INFECTION PROPHYLAXIS
     Route: 061
     Dates: start: 20160721
  24. ATEZOLIZUMAB [Suspect]
     Active Substance: ATEZOLIZUMAB
     Indication: GASTRIC CANCER
     Dosage: MOST RECENT DOSE OF ATEZOLIZUMAB, 840 MG, PRIOR TO SAE ONSET DATE WAS ON 03/AUG/2016
     Route: 042
     Dates: start: 20160720
  25. BEVACIZUMAB [Suspect]
     Active Substance: BEVACIZUMAB
     Indication: NEOPLASM
  26. NEURONTIN [Concomitant]
     Active Substance: GABAPENTIN
     Indication: SPINAL OPERATION
     Route: 048
     Dates: start: 201509
  27. PHAZYME-95 [Concomitant]
     Indication: DYSPEPSIA
     Route: 048
     Dates: start: 20160818
  28. DEXAMETHASONE. [Concomitant]
     Active Substance: DEXAMETHASONE
     Route: 042
     Dates: start: 20160803, end: 20160803
  29. PENIRAMIN [Concomitant]
     Route: 042
     Dates: start: 20160804, end: 20160804
  30. MACPERAN [Concomitant]
     Active Substance: METOCLOPRAMIDE HYDROCHLORIDE
     Route: 042
     Dates: start: 20160804, end: 20160804
  31. BUSPAR [Concomitant]
     Active Substance: BUSPIRONE HYDROCHLORIDE
     Indication: SPINAL OPERATION
     Route: 048
     Dates: start: 201509
  32. GASTER [Concomitant]
     Active Substance: FAMOTIDINE
     Route: 048
     Dates: start: 20160803, end: 20160806
  33. PENIRAMIN [Concomitant]
     Indication: NAUSEA
     Route: 042
     Dates: start: 20160721, end: 20160721
  34. ATEZOLIZUMAB [Suspect]
     Active Substance: ATEZOLIZUMAB
     Indication: NEOPLASM
  35. GASTER [Concomitant]
     Active Substance: FAMOTIDINE
     Indication: PREMEDICATION
     Route: 042
     Dates: start: 20160720, end: 20160724

REACTIONS (1)
  - Neutrophil count decreased [Recovered/Resolved]

NARRATIVE: CASE EVENT DATE: 20160803
